FAERS Safety Report 9332479 (Version 2)
Quarter: 2013Q2

REPORT INFORMATION
  Report Type: Report from Study
  Country: CA (occurrence: CA)
  Receive Date: 20130606
  Receipt Date: 20130610
  Transmission Date: 20140414
  Serious: Yes (Other)
  Sender: FDA-Public Use
  Company Number: CA-JNJFOC-20130600973

PATIENT
  Age: 57 Year
  Sex: Female
  Weight: 52 kg

DRUGS (6)
  1. REMICADE [Suspect]
     Indication: CROHN^S DISEASE
     Dosage: 20 INFUSIONS TILL DATE
     Route: 042
     Dates: start: 20130409
  2. REMICADE [Suspect]
     Indication: CROHN^S DISEASE
     Route: 042
     Dates: start: 20090924
  3. CITALOPRAM [Concomitant]
     Route: 065
  4. NEXIUM [Concomitant]
     Route: 065
  5. ATIVAN [Concomitant]
     Route: 065
  6. ZOPICLONE [Concomitant]
     Route: 065

REACTIONS (1)
  - Breast cancer [Not Recovered/Not Resolved]
